FAERS Safety Report 24611774 (Version 1)
Quarter: 2024Q4

REPORT INFORMATION
  Report Type: Spontaneous
  Country: CA (occurrence: CA)
  Receive Date: 20241113
  Receipt Date: 20241113
  Transmission Date: 20250115
  Serious: Yes (Other)
  Sender: HIKMA
  Company Number: CA-HIKMA PHARMACEUTICALS USA INC.-CA-H14001-24-10339

PATIENT
  Age: 13 Year
  Sex: Female

DRUGS (10)
  1. CISPLATIN [Suspect]
     Active Substance: CISPLATIN
     Indication: Metastatic mesothelioma
     Dosage: UNK
     Route: 065
  2. CISPLATIN [Suspect]
     Active Substance: CISPLATIN
     Indication: Epithelioid mesothelioma
  3. NAPROXEN [Suspect]
     Active Substance: NAPROXEN
     Indication: Arthritis
     Dosage: 10 MILLIGRAM PER KILOGRAM, BID
     Route: 065
  4. NAPROXEN [Suspect]
     Active Substance: NAPROXEN
     Dosage: 12 MILLIGRAM PER KILOGRAM, BID
     Route: 065
  5. PEMETREXED [Suspect]
     Active Substance: PEMETREXED
     Indication: Metastatic mesothelioma
     Dosage: UNKNOWN
     Route: 065
  6. PEMETREXED [Suspect]
     Active Substance: PEMETREXED
     Indication: Epithelioid mesothelioma
  7. IPILIMUMAB [Concomitant]
     Active Substance: IPILIMUMAB
     Indication: Metastatic mesothelioma
     Dosage: UNKNOWN
     Route: 065
  8. IPILIMUMAB [Concomitant]
     Active Substance: IPILIMUMAB
     Indication: Epithelioid mesothelioma
  9. NIVOLUMAB [Concomitant]
     Active Substance: NIVOLUMAB
     Indication: Metastatic mesothelioma
     Dosage: UNKNOWN
     Route: 042
  10. NIVOLUMAB [Concomitant]
     Active Substance: NIVOLUMAB
     Indication: Epithelioid mesothelioma

REACTIONS (2)
  - Gastrointestinal disorder [Unknown]
  - Therapy partial responder [Unknown]
